FAERS Safety Report 9565997 (Version 1)
Quarter: 2013Q3

REPORT INFORMATION
  Report Type: Spontaneous
  Country: IT (occurrence: FR)
  Receive Date: 20130930
  Receipt Date: 20130930
  Transmission Date: 20140515
  Serious: Yes (Hospitalization)
  Sender: FDA-Public Use
  Company Number: FR-FRI-1000049244

PATIENT
  Age: 83 Year
  Sex: Female

DRUGS (4)
  1. NEBIVOLOL [Suspect]
     Indication: HYPERTENSION
     Dosage: 5 MG
     Route: 048
  2. FORTZAAR [Suspect]
     Indication: HYPERTENSION
     Dosage: 100 MG/25 MG
     Route: 048
     Dates: end: 20120810
  3. DOGMATIL [Suspect]
     Indication: PSYCHOTIC DISORDER
     Dosage: 50 MG
     Route: 048
  4. LEXOMIL [Suspect]
     Indication: ANXIETY
     Dosage: 3 MG
     Route: 048
     Dates: end: 20120810

REACTIONS (3)
  - Fall [Recovered/Resolved]
  - Dehydration [Recovered/Resolved]
  - Hypokalaemia [Recovered/Resolved]
